FAERS Safety Report 25622926 (Version 1)
Quarter: 2025Q3

REPORT INFORMATION
  Report Type: Spontaneous
  Country: CN (occurrence: CN)
  Receive Date: 20250730
  Receipt Date: 20250730
  Transmission Date: 20251020
  Serious: Yes (Other)
  Sender: AMGEN
  Company Number: CN-AMGEN-CHNSP2025146299

PATIENT
  Age: 49 Year
  Sex: Female

DRUGS (1)
  1. CINACALCET HYDROCHLORIDE [Suspect]
     Active Substance: CINACALCET HYDROCHLORIDE
     Indication: Hyperparathyroidism secondary
     Route: 065

REACTIONS (8)
  - Hyperparathyroidism secondary [Recovered/Resolved]
  - Parathyroid hyperplasia [Recovered/Resolved]
  - Hungry bone syndrome [Recovered/Resolved]
  - Parathyroid tumour benign [Recovered/Resolved]
  - Aortic arteriosclerosis [Recovered/Resolved]
  - Arteriosclerosis coronary artery [Recovered/Resolved]
  - Pruritus [Recovered/Resolved]
  - Hypophosphataemia [Recovered/Resolved]
